FAERS Safety Report 22061368 (Version 1)
Quarter: 2023Q1

REPORT INFORMATION
  Report Type: Report from Study
  Country: ES (occurrence: ES)
  Receive Date: 20230304
  Receipt Date: 20230304
  Transmission Date: 20230417
  Serious: Yes (Death, Hospitalization)
  Sender: FDA-Public Use
  Company Number: ES-ABBVIE-22K-144-4412432-00

PATIENT
  Sex: Male

DRUGS (2)
  1. CARBIDOPA\LEVODOPA [Suspect]
     Active Substance: CARBIDOPA\LEVODOPA
     Indication: Parkinson^s disease
     Route: 050
     Dates: start: 20170831
  2. CARBIDOPA\LEVODOPA [Suspect]
     Active Substance: CARBIDOPA\LEVODOPA

REACTIONS (12)
  - Sepsis [Unknown]
  - Constipation [Unknown]
  - Unevaluable event [Not Recovered/Not Resolved]
  - Off label use [Unknown]
  - Device issue [Recovered/Resolved]
  - Illness [Unknown]
  - Hypophagia [Not Recovered/Not Resolved]
  - Bedridden [Not Recovered/Not Resolved]
  - Impaired gastric emptying [Not Recovered/Not Resolved]
  - Pyrexia [Not Recovered/Not Resolved]
  - Device dislocation [Unknown]
  - Death [Fatal]

NARRATIVE: CASE EVENT DATE: 20220101
